FAERS Safety Report 21182672 (Version 2)
Quarter: 2022Q3

REPORT INFORMATION
  Report Type: Spontaneous
  Country: GB (occurrence: GB)
  Receive Date: 20220808
  Receipt Date: 20220908
  Transmission Date: 20221027
  Serious: Yes (Hospitalization)
  Sender: FDA-Public Use
  Company Number: GB-PFIZER INC-PV202200036236

PATIENT
  Age: 72 Year
  Sex: Female

DRUGS (1)
  1. ENBREL [Suspect]
     Active Substance: ETANERCEPT
     Indication: Rheumatoid arthritis
     Dosage: 25 MILLIGRAM, UNK
     Route: 065
     Dates: end: 202205

REACTIONS (5)
  - Thrombosis [Unknown]
  - Malaise [Unknown]
  - Pulmonary congestion [Unknown]
  - Dyspnoea [Unknown]
  - Pneumonia [Unknown]
